FAERS Safety Report 5052451-2 (Version None)
Quarter: 2006Q3

REPORT INFORMATION
  Report Type: 
  Country: None (occurrence: None)
  Receive Date: 20060717
  Receipt Date: 20060131
  Transmission Date: 20061208
  Serious: No
  Sender: FDA-Public Use
  Company Number: US-BRISTOL-MYERS SQUIBB COMPANY-13265384

PATIENT
  Age: 59 Year
  Sex: Female

DRUGS (2)
  1. ESTRADIOL [Suspect]
  2. CLIMARA [Suspect]

REACTIONS (2)
  - ANXIETY [None]
  - BLOOD OESTROGEN INCREASED [None]
